FAERS Safety Report 10779003 (Version 1)
Quarter: 2015Q1

REPORT INFORMATION
  Report Type: Spontaneous
  Country: US (occurrence: None)
  Receive Date: 20150205
  Receipt Date: 20150205
  Transmission Date: 20150721
  Serious: Yes (Life-Threatening, Hospitalization)
  Sender: FDA-Public Use
  Company Number: None

PATIENT
  Age: 70 Year
  Sex: Female
  Weight: 75.75 kg

DRUGS (17)
  1. ZOFRAN [Concomitant]
     Active Substance: ONDANSETRON HYDROCHLORIDE
  2. EFFEXOR RX [Concomitant]
  3. VITAMIN D [Concomitant]
     Active Substance: CHOLECALCIFEROL
  4. VITAMIN E [Concomitant]
     Active Substance: .ALPHA.-TOCOPHEROL
  5. LINZESS [Concomitant]
     Active Substance: LINACLOTIDE
  6. CLOBETASOL [Concomitant]
     Active Substance: CLOBETASOL
  7. K DUR [Concomitant]
  8. LYRICA [Concomitant]
     Active Substance: PREGABALIN
  9. VITAMIN B COMPLEX [Concomitant]
     Active Substance: CYANOCOBALAMIN\DEXPANTHENOL\NIACINAMIDE\PYRIDOXINE HYDROCHLORIDE\RIBOFLAVIN 5^-PHOSPHATE SODIUM\THIAMINE HYDROCHLORIDE\VITAMIN B COMPLEX
  10. COUMADIN [Concomitant]
     Active Substance: WARFARIN SODIUM
  11. IBUPROFEN. [Concomitant]
     Active Substance: IBUPROFEN
  12. FISH OIL [Concomitant]
     Active Substance: FISH OIL
  13. ONE A DAY [Concomitant]
  14. MACROBID [Suspect]
     Active Substance: NITROFURANTOIN\NITROFURANTOIN MONOHYDRATE
     Indication: CYSTITIS
     Dosage: 2 PILLS A DAY 1 IN MORNING 1 IN EVENING BY MOUTH
     Route: 048
     Dates: start: 20141220, end: 20141223
  15. VITAMIN C [Concomitant]
     Active Substance: ASCORBIC ACID
  16. BISACODY [Concomitant]
  17. MYRBETRIC [Concomitant]

REACTIONS (16)
  - Tremor [None]
  - Chest pain [None]
  - Chills [None]
  - Muscular weakness [None]
  - Feeling abnormal [None]
  - Agitation [None]
  - Malaise [None]
  - Dysstasia [None]
  - Middle insomnia [None]
  - Bone marrow failure [None]
  - Dyspnoea [None]
  - Palpitations [None]
  - Headache [None]
  - Bone pain [None]
  - Panic reaction [None]
  - Pain [None]

NARRATIVE: CASE EVENT DATE: 20141222
